FAERS Safety Report 6815259-0 (Version None)
Quarter: 2010Q3

REPORT INFORMATION
  Report Type: 
  Country: None (occurrence: None)
  Receive Date: 20100701
  Receipt Date: 20100701
  Transmission Date: 20110219
  Serious: Yes (Other)
  Sender: FDA-Public Use
  Company Number: None

PATIENT
  Age: 29 Year
  Sex: Female
  Weight: 54.4316 kg

DRUGS (1)
  1. TOPAMAX 25MG ORTHO-MCNEIL-JANSSEN PHARMACEUTICALS [Suspect]
     Indication: MIGRAINE PROPHYLAXIS
     Dosage: 50MG NIGHTLY PO
     Route: 048

REACTIONS (7)
  - ALOPECIA [None]
  - DECREASED APPETITE [None]
  - DIZZINESS [None]
  - FALL [None]
  - INCOHERENT [None]
  - SYNCOPE [None]
  - WEIGHT DECREASED [None]
